FAERS Safety Report 7311196-6 (Version None)
Quarter: 2011Q1

REPORT INFORMATION
  Report Type: 
  Country: None (occurrence: None)
  Receive Date: 20110224
  Receipt Date: 20110208
  Transmission Date: 20110831
  Serious: Yes (Hospitalization, Other)
  Sender: FDA-Public Use
  Company Number: US-BAYER-2011-017205

PATIENT
  Sex: Female
  Weight: 48 kg

DRUGS (1)
  1. YASMIN [Suspect]
     Indication: CONTRACEPTION
     Dosage: UNK UNK, QD
     Route: 048
     Dates: start: 20050903, end: 20071021

REACTIONS (6)
  - NEUROPATHY PERIPHERAL [None]
  - VERTIGO [None]
  - CHOLECYSTECTOMY [None]
  - TRANSIENT ISCHAEMIC ATTACK [None]
  - PARAESTHESIA [None]
  - DIPLOPIA [None]
